FAERS Safety Report 7652836-1 (Version None)
Quarter: 2011Q3

REPORT INFORMATION
  Report Type: 
  Country: None (occurrence: None)
  Receive Date: 20110803
  Receipt Date: 20110725
  Transmission Date: 20111222
  Serious: Yes (Hospitalization)
  Sender: FDA-Public Use
  Company Number: US-JNJFOC-20110711108

PATIENT
  Age: 58 Year
  Sex: Female
  Weight: 106.2 kg

DRUGS (10)
  1. PERCOCET [Suspect]
     Indication: PROCEDURAL PAIN
     Route: 048
     Dates: start: 20110714, end: 20110715
  2. PERCOCET [Suspect]
     Route: 048
     Dates: start: 20110715, end: 20110716
  3. EXTRA STRENGTH TYLENOL [Suspect]
     Route: 048
  4. OXYCONTIN [Suspect]
     Indication: PROCEDURAL PAIN
     Route: 048
     Dates: start: 20110715, end: 20110716
  5. OXYCONTIN [Suspect]
     Route: 048
     Dates: start: 20110714, end: 20110715
  6. LEVETIRACETAM [Concomitant]
     Indication: CONVULSION
  7. VALPROIC ACID [Concomitant]
     Indication: CONVULSION
  8. EXTRA STRENGTH TYLENOL [Suspect]
     Indication: PROCEDURAL PAIN
     Route: 048
     Dates: start: 20110714, end: 20110715
  9. TOPIRAMATE [Concomitant]
     Indication: CONVULSION
  10. SEVOFLURANE [Suspect]
     Indication: GENERAL ANAESTHESIA
     Dates: start: 20110714, end: 20110714

REACTIONS (3)
  - ENCEPHALOPATHY [None]
  - HEPATIC ENZYME INCREASED [None]
  - TOXICITY TO VARIOUS AGENTS [None]
